FAERS Safety Report 13081479 (Version 1)
Quarter: 2017Q1

REPORT INFORMATION
  Report Type: Spontaneous
  Country: US (occurrence: US)
  Receive Date: 20170103
  Receipt Date: 20170103
  Transmission Date: 20170428
  Serious: No
  Sender: FDA-Public Use
  Company Number: US-PFIZER INC-2016596757

PATIENT
  Age: 67 Year
  Sex: Female
  Weight: 82.99 kg

DRUGS (1)
  1. IBRANCE [Suspect]
     Active Substance: PALBOCICLIB
     Indication: BREAST CANCER METASTATIC
     Dosage: 125 MG, CYCLIC ( DAYS 1-21 Q28 DAYS)
     Route: 048
     Dates: start: 20160914

REACTIONS (1)
  - Urinary tract infection [Unknown]
